FAERS Safety Report 8960925 (Version 1)
Quarter: 2012Q4

REPORT INFORMATION
  Report Type: 
  Country: EC (occurrence: EC)
  Receive Date: 20121212
  Receipt Date: 20121212
  Transmission Date: 20130627
  Serious: Yes (Hospitalization)
  Sender: FDA-Public Use
  Company Number: PHHY2012EC113008

PATIENT
  Sex: Female

DRUGS (1)
  1. TEGRETOL CR [Suspect]
     Dosage: 400 mg, QD
     Route: 048
     Dates: start: 2009

REACTIONS (1)
  - Arthropathy [Unknown]
